FAERS Safety Report 14452225 (Version 1)
Quarter: 2018Q1

REPORT INFORMATION
  Report Type: Report from Study
  Country: JP (occurrence: JP)
  Receive Date: 20180129
  Receipt Date: 20180129
  Transmission Date: 20180509
  Serious: No
  Sender: FDA-Public Use
  Company Number: JP-BIOVERATIV-2017BI00365330

PATIENT
  Age: 14 Year
  Sex: Male
  Weight: 42.3 kg

DRUGS (9)
  1. HAEMOLEX [Concomitant]
     Indication: HAEMORRHOIDS
     Route: 061
     Dates: start: 20081208
  2. NOVACT M [Concomitant]
     Indication: FACTOR IX DEFICIENCY
     Dosage: ADDITIONAL TREATMENT
     Route: 042
     Dates: start: 20141020
  3. TRANEXAMIC ACID. [Concomitant]
     Active Substance: TRANEXAMIC ACID
     Indication: HAEMORRHAGE
     Route: 048
  4. FLUTICASONE. [Concomitant]
     Active Substance: FLUTICASONE
     Indication: RHINITIS ALLERGIC
     Route: 045
     Dates: start: 20150519
  5. LAXOBERON [Concomitant]
     Active Substance: SODIUM PICOSULFATE
     Indication: CONSTIPATION
     Route: 048
     Dates: start: 20081207
  6. NOVACT M [Concomitant]
     Dosage: ADDITIONAL TREATMENT
     Route: 042
     Dates: start: 20150329, end: 20150329
  7. FEXOFENADINE HYDROCHLORIDE. [Concomitant]
     Active Substance: FEXOFENADINE HYDROCHLORIDE
     Indication: RHINITIS ALLERGIC
     Route: 048
     Dates: start: 20141117
  8. ALPROLIX [Suspect]
     Active Substance: EFTRENONACOG ALFA
     Indication: FACTOR IX DEFICIENCY
     Route: 042
     Dates: start: 20141020
  9. LIVOSTIN [Concomitant]
     Active Substance: LEVOCABASTINE HYDROCHLORIDE
     Indication: CONJUNCTIVITIS ALLERGIC
     Route: 031
     Dates: start: 20141229

REACTIONS (4)
  - Upper respiratory tract inflammation [Recovered/Resolved]
  - Limb mass [Recovered/Resolved]
  - Oropharyngeal pain [Recovered/Resolved]
  - Tongue haemorrhage [Recovered/Resolved]

NARRATIVE: CASE EVENT DATE: 20141018
